FAERS Safety Report 4770321-1 (Version None)
Quarter: 2005Q3

REPORT INFORMATION
  Report Type: 
  Country: None (occurrence: None)
  Receive Date: 20050915
  Receipt Date: 20050419
  Transmission Date: 20060218
  Serious: No
  Sender: FDA-Public Use
  Company Number: US-GLAXOSMITHKLINE-A0554986A

PATIENT
  Age: 57 Year
  Sex: Male

DRUGS (1)
  1. ABREVA [Suspect]
     Dates: start: 20050413, end: 20050418

REACTIONS (4)
  - APPLICATION SITE DISCHARGE [None]
  - DRUG INEFFECTIVE [None]
  - HERPES SIMPLEX [None]
  - SCAB [None]
